FAERS Safety Report 8013037-0 (Version None)
Quarter: 2011Q4

REPORT INFORMATION
  Report Type: 
  Country: None (occurrence: None)
  Receive Date: 20111229
  Receipt Date: 20111227
  Transmission Date: 20120403
  Serious: Yes (Other)
  Sender: FDA-Public Use
  Company Number: RS-PFIZER INC-2011314784

PATIENT
  Age: 57 Year
  Sex: Male

DRUGS (3)
  1. RAPAMUNE [Suspect]
     Indication: PROPHYLAXIS AGAINST TRANSPLANT REJECTION
     Dosage: 1 MG, 1X/DAY
     Route: 048
     Dates: start: 20091120, end: 20110501
  2. PROPRANOLOL [Concomitant]
     Indication: PORTAL HYPERTENSION
     Dosage: 40 MG, 2X/DAY
     Route: 048
  3. PREDNISONE [Concomitant]
     Indication: PROPHYLAXIS AGAINST TRANSPLANT REJECTION
     Dosage: 5 MG, 1X/DAY
     Route: 048

REACTIONS (1)
  - SCHIZOPHRENIA [None]
